FAERS Safety Report 8452037-3 (Version None)
Quarter: 2012Q2

REPORT INFORMATION
  Report Type: 
  Country: None (occurrence: None)
  Receive Date: 20120620
  Receipt Date: 20120614
  Transmission Date: 20120825
  Serious: Yes (Hospitalization)
  Sender: FDA-Public Use
  Company Number: FR-BRISTOL-MYERS SQUIBB COMPANY-16551228

PATIENT
  Age: 38 Year
  Sex: Female

DRUGS (7)
  1. CALCIPARINE [Suspect]
     Indication: THROMBOSIS
  2. TRANDOLAPRIL [Suspect]
     Indication: RENAL FAILURE
     Dosage: HARD CAPSULE IN THE MORNING
     Dates: start: 20120208
  3. FLUCONAZOLE [Suspect]
     Dosage: HARD CAPSULE IN THE MORNING
  4. CRESTOR [Suspect]
     Dosage: TABLET
     Dates: start: 20120301
  5. ATOVAQUONE [Suspect]
     Indication: CEREBRAL TOXOPLASMOSIS
     Dosage: 750 MG X 2/D, FOR 60 DAYS FROM 15-JAN-2012 TO 14-MAR-2012 AND 1500 MG X 2/D SINCE 15-MAR-2012
     Dates: start: 20120115
  6. FUNGIZONE [Suspect]
     Indication: CEREBRAL TOXOPLASMOSIS
  7. NEXIUM [Suspect]
     Indication: RENAL FAILURE
     Dosage: IN THE EVENING, TAB
     Route: 048
     Dates: start: 20120125, end: 20120301

REACTIONS (1)
  - NEUTROPENIA [None]
